FAERS Safety Report 4575460-6 (Version None)
Quarter: 2005Q1

REPORT INFORMATION
  Report Type: 
  Country: None (occurrence: None)
  Receive Date: 20050209
  Receipt Date: 20041129
  Transmission Date: 20050727
  Serious: Yes (Death, Hospitalization)
  Sender: FDA-Public Use
  Company Number: 200419174US

PATIENT
  Sex: Male

DRUGS (5)
  1. LANTUS [Suspect]
     Indication: DIABETES MELLITUS INSULIN-DEPENDENT
     Dosage: DOSE UNIT: UNITS
     Route: 051
  2. REGULAR INSULIN [Concomitant]
     Indication: DIABETES MELLITUS INSULIN-DEPENDENT
     Dosage: DOSE: SLIDING SCALE
  3. REMICADE [Concomitant]
     Indication: GOUT
     Dosage: DOSE: UNKNOWN
  4. TOPROL-XL [Concomitant]
     Indication: HYPERTENSION
     Dosage: DOSE: UNK
  5. ZOLOFT [Concomitant]
     Indication: DEPRESSION
     Dosage: DOSE: UNK

REACTIONS (3)
  - BLOOD GLUCOSE DECREASED [None]
  - DEATH [None]
  - DRUG INTERACTION [None]
